FAERS Safety Report 16183622 (Version 2)
Quarter: 2020Q2

REPORT INFORMATION
  Report Type: Spontaneous
  Country: US (occurrence: US)
  Receive Date: 20190411
  Receipt Date: 20200624
  Transmission Date: 20200713
  Serious: Yes (Death, Other)
  Sender: FDA-Public Use
  Company Number: US-JNJFOC-20190343375

PATIENT
  Age: 84 Year
  Sex: Female

DRUGS (3)
  1. XARELTO [Suspect]
     Active Substance: RIVAROXABAN
     Indication: ATRIAL FIBRILLATION
  2. XARELTO [Suspect]
     Active Substance: RIVAROXABAN
     Indication: CEREBROVASCULAR ACCIDENT PROPHYLAXIS
  3. XARELTO [Suspect]
     Active Substance: RIVAROXABAN
     Indication: THROMBOSIS
     Dosage: IN A VARYING DOSE OF 15 MG AND 20 MG
     Route: 048

REACTIONS (5)
  - Septic shock [Fatal]
  - Urinary tract infection [Fatal]
  - Haemorrhage [Unknown]
  - Pneumonia [Fatal]
  - Renal injury [Fatal]

NARRATIVE: CASE EVENT DATE: 201604
